FAERS Safety Report 12419831 (Version 3)
Quarter: 2016Q3

REPORT INFORMATION
  Report Type: Spontaneous
  Country: DE (occurrence: DE)
  Receive Date: 20160531
  Receipt Date: 20160826
  Transmission Date: 20161109
  Serious: Yes (Other)
  Sender: FDA-Public Use
  Company Number: PHHY2016DE071955

PATIENT
  Age: 74 Year
  Sex: Male

DRUGS (6)
  1. EPLERENON GENERIC [Concomitant]
     Indication: PRODUCT USED FOR UNKNOWN INDICATION
     Dosage: 1 DF, QD
     Route: 065
  2. DEKRISTOL [Concomitant]
     Active Substance: CHOLECALCIFEROL
     Indication: PRODUCT USED FOR UNKNOWN INDICATION
     Dosage: 1 DF, QW
     Route: 065
     Dates: start: 201407
  3. ENTRESTO [Suspect]
     Active Substance: SACUBITRIL\VALSARTAN
     Dosage: 50 MG, BID
     Route: 048
     Dates: start: 20160327, end: 20160329
  4. PLAVIX [Concomitant]
     Active Substance: CLOPIDOGREL BISULFATE
     Indication: PRODUCT USED FOR UNKNOWN INDICATION
     Dosage: 1 DF, QD
     Route: 065
  5. FINURAL [Concomitant]
     Indication: PRODUCT USED FOR UNKNOWN INDICATION
     Dosage: 1 DF, QD
     Route: 065
  6. ENTRESTO [Suspect]
     Active Substance: SACUBITRIL\VALSARTAN
     Indication: CARDIAC FAILURE
     Dosage: UNK
     Route: 048
     Dates: start: 20160218, end: 20160316

REACTIONS (20)
  - Vertigo [Unknown]
  - Obstructive airways disorder [Unknown]
  - Hyperhidrosis [Unknown]
  - Diplopia [Unknown]
  - Fatigue [Unknown]
  - Oedema [Unknown]
  - Arthralgia [Unknown]
  - Nausea [Unknown]
  - Malaise [Unknown]
  - Synovitis [Unknown]
  - Pruritus [Unknown]
  - Depressed level of consciousness [Unknown]
  - Flatulence [Unknown]
  - Apathy [Unknown]
  - Acne [Unknown]
  - Sensory disturbance [Unknown]
  - Personality change [Unknown]
  - Eye pain [Unknown]
  - Diarrhoea [Unknown]
  - Dizziness [Unknown]

NARRATIVE: CASE EVENT DATE: 201602
